FAERS Safety Report 21440693 (Version 1)
Quarter: 2022Q4

REPORT INFORMATION
  Report Type: Spontaneous
  Country: GB (occurrence: GB)
  Receive Date: 20221011
  Receipt Date: 20221011
  Transmission Date: 20230113
  Serious: Yes (Other)
  Sender: FDA-Public Use
  Company Number: None

PATIENT
  Age: 54 Year
  Sex: Female

DRUGS (2)
  1. FLUCONAZOLE [Suspect]
     Active Substance: FLUCONAZOLE
     Indication: Candida infection
     Dosage: AT NIGHT
  2. GENTAMICIN [Concomitant]
     Active Substance: GENTAMICIN
     Indication: Urinary tract infection
     Dates: start: 20220901, end: 20220901

REACTIONS (8)
  - Swelling face [Unknown]
  - Gingival swelling [Unknown]
  - Pharyngeal swelling [Unknown]
  - Burning sensation [Unknown]
  - Swelling [Unknown]
  - Pain [Unknown]
  - Muscle swelling [Unknown]
  - Myositis [Unknown]

NARRATIVE: CASE EVENT DATE: 20220901
